FAERS Safety Report 17911321 (Version 1)
Quarter: 2020Q2

REPORT INFORMATION
  Report Type: Spontaneous
  Country: US (occurrence: US)
  Receive Date: 20200617
  Receipt Date: 20200617
  Transmission Date: 20200714
  Serious: Yes (Hospitalization)
  Sender: FDA-Public Use
  Company Number: None

PATIENT
  Sex: Male

DRUGS (12)
  1. TACROLIMUS 0.5MG CAP [Suspect]
     Active Substance: TACROLIMUS
     Indication: LIVER TRANSPLANT
     Route: 048
     Dates: start: 20200411
  2. DOXYCYCL HYC [Concomitant]
  3. PHENAZOPYRID [Concomitant]
  4. URSODIOL. [Concomitant]
     Active Substance: URSODIOL
  5. ONDANSETRON [Concomitant]
     Active Substance: ONDANSETRON
  6. BANOPHEN [Concomitant]
     Active Substance: DIPHENHYDRAMINE HYDROCHLORIDE
  7. MONTELUKAST [Concomitant]
     Active Substance: MONTELUKAST SODIUM
  8. TAMSULOSIN [Concomitant]
     Active Substance: TAMSULOSIN
  9. MINOCYCLINE [Concomitant]
     Active Substance: MINOCYCLINE HYDROCHLORIDE
  10. SPIRONOLACT [Concomitant]
     Active Substance: SPIRONOLACTONE
  11. PREDNISONE. [Concomitant]
     Active Substance: PREDNISONE
  12. FUROSEMIDE. [Concomitant]
     Active Substance: FUROSEMIDE

REACTIONS (1)
  - Therapy interrupted [None]
